FAERS Safety Report 6419193-X (Version None)
Quarter: 2009Q4

REPORT INFORMATION
  Report Type: 
  Country: None (occurrence: None)
  Receive Date: 20091029
  Receipt Date: 20091027
  Transmission Date: 20100525
  Serious: Yes (Other)
  Sender: FDA-Public Use
  Company Number: CA-ROCHE-664876

PATIENT
  Age: 9 Year
  Sex: Male

DRUGS (2)
  1. TAMIFLU [Suspect]
     Route: 065
     Dates: start: 20091026
  2. PREDNISONE TAB [Concomitant]
     Indication: ASTHMA

REACTIONS (1)
  - DIPLOPIA [None]
